FAERS Safety Report 8974262 (Version 2)
Quarter: 2013Q1

REPORT INFORMATION
  Report Type: Spontaneous
  Country: BE (occurrence: None)
  Receive Date: 20121214
  Receipt Date: 20130327
  Transmission Date: 20140127
  Serious: Yes (Other)
  Sender: FDA-Public Use
  Company Number: 2012000266

PATIENT
  Age: 59 Year
  Sex: Female

DRUGS (4)
  1. ACEON (PERINDOPRIL ERBUMINE) TABLET [Suspect]
     Indication: HYPERTENSION
     Dosage: 5 MG,  QD,  ORAL
     Route: 048
     Dates: start: 201204, end: 201208
  2. BISOPROLOL (BISOPROLOL) [Concomitant]
  3. NOLVADEX (TAMOXIFEN) [Concomitant]
  4. ACETYLSALICYLIC ACID [Suspect]

REACTIONS (8)
  - Pruritus [None]
  - Hyperhidrosis [None]
  - Angioedema [None]
  - Abdominal pain [None]
  - Diarrhoea [None]
  - Lip swelling [None]
  - Swollen tongue [None]
  - Small bowel angioedema [None]
